FAERS Safety Report 11312049 (Version 2)
Quarter: 2015Q3

REPORT INFORMATION
  Report Type: Spontaneous
  Country: GB (occurrence: GB)
  Receive Date: 20150727
  Receipt Date: 20150929
  Transmission Date: 20151125
  Serious: Yes (Other)
  Sender: FDA-Public Use
  Company Number: GB-SA-2015SA107455

PATIENT
  Age: 71 Year
  Sex: Female
  Weight: 79 kg

DRUGS (6)
  1. DIPROBASE [Concomitant]
     Active Substance: CHLOROCRESOL
     Dosage: USE OFTEN
     Dates: start: 20150619
  2. IRBESARTAN. [Suspect]
     Active Substance: IRBESARTAN
     Route: 065
     Dates: start: 20150318
  3. BECLOMETASONE [Concomitant]
     Active Substance: BECLOMETHASONE DIPROPIONATE
     Dates: start: 20141030
  4. APROVEL [Concomitant]
     Active Substance: IRBESARTAN
     Dates: start: 20150424, end: 20150625
  5. ATENOLOL. [Concomitant]
     Active Substance: ATENOLOL
     Dates: start: 20141125
  6. CHLORPHENAMINE [Concomitant]
     Active Substance: CHLORPHENIRAMINE MALEATE
     Dosage: TAKE ONE EVERY 4-6 HOURS
     Dates: start: 20150618, end: 20150625

REACTIONS (2)
  - Cutaneous vasculitis [Recovered/Resolved]
  - Vasculitic rash [Recovered/Resolved]

NARRATIVE: CASE EVENT DATE: 20150710
